FAERS Safety Report 11137200 (Version 1)
Quarter: 2015Q2

REPORT INFORMATION
  Report Type: Spontaneous
  Country: ES (occurrence: ES)
  Receive Date: 20150526
  Receipt Date: 20150526
  Transmission Date: 20150821
  Serious: Yes (Other)
  Sender: FDA-Public Use
  Company Number: ES-GLAXOSMITHKLINE-ES2015069438

PATIENT
  Age: 88 Year
  Sex: Male
  Weight: 72 kg

DRUGS (14)
  1. AMLODIPINE [Concomitant]
     Active Substance: AMLODIPINE BESYLATE
     Route: 065
  2. LEVOFLOXACIN. [Suspect]
     Active Substance: LEVOFLOXACIN
     Indication: BRONCHITIS
     Dosage: 1 COMPRIMIDO DE 500MG AL DIA
     Route: 048
     Dates: start: 20150408, end: 20150420
  3. DUODART (DUTASTERID + TAMSULOSIN HCL) [Concomitant]
     Route: 065
  4. CLOMETIAZOL [Concomitant]
     Dosage: 132 MG DOS VECES AL DIA
     Route: 065
  5. ICANDRA (METFORMIN/VILDAGLIPTIN) [Concomitant]
     Route: 065
  6. OMEPRAZOL [Concomitant]
     Active Substance: OMEPRAZOLE
     Route: 065
  7. VENTOLIN [Suspect]
     Active Substance: ALBUTEROL SULFATE
     Indication: BRONCHITIS
     Dosage: SALBUTAMOL 100 MCG EN 1 PULSACION: 2 INHALACIONES CADA 6 HORAS
     Route: 055
     Dates: start: 201504, end: 20150416
  8. SPIRIVA [Concomitant]
     Active Substance: TIOTROPIUM BROMIDE MONOHYDRATE
     Dosage: 1 INHALACION/DIA
     Route: 065
  9. MEPIRAMINA [Suspect]
     Active Substance: PYRILAMINE
     Indication: BRONCHITIS
     Dosage: MEPIRAMINA 25 MG EN 5 ML: 3 VECES AL DIA
     Route: 048
     Dates: start: 20150408, end: 20150416
  10. METAMIZOL [Concomitant]
     Active Substance: METAMIZOLE SODIUM
     Route: 065
     Dates: start: 20150408
  11. PARACETAMOL [Concomitant]
     Active Substance: ACETAMINOPHEN
     Route: 065
     Dates: start: 20150408
  12. RONAME [Concomitant]
     Active Substance: GLIMEPIRIDE
     Route: 065
  13. ADIRO [Concomitant]
     Active Substance: ASPIRIN
     Route: 065
  14. EMCONCOR (BISOPROLOL) [Concomitant]
     Route: 065

REACTIONS (7)
  - Apathy [Recovering/Resolving]
  - Irritability [Recovered/Resolved]
  - Muscular weakness [Recovering/Resolving]
  - Gait disturbance [Recovering/Resolving]
  - Nervousness [Recovering/Resolving]
  - Suicidal behaviour [Recovered/Resolved]
  - Constipation [Recovering/Resolving]

NARRATIVE: CASE EVENT DATE: 20150409
